FAERS Safety Report 6535795-4 (Version None)
Quarter: 2010Q1

REPORT INFORMATION
  Report Type: 
  Country: None (occurrence: None)
  Receive Date: 20100106
  Receipt Date: 20091224
  Transmission Date: 20100710
  Serious: Yes (Death, Life-Threatening, Hospitalization)
  Sender: FDA-Public Use
  Company Number: WAES 0905USA03326

PATIENT
  Age: 60 Year
  Sex: Male

DRUGS (10)
  1. CAP VORINOSTAT [Suspect]
     Indication: MULTIPLE MYELOMA
     Dosage: 400 MG/DAILY, PO
     Route: 048
     Dates: start: 20090417, end: 20090430
  2. BORTEZOMIB [Suspect]
     Indication: MULTIPLE MYELOMA
     Dosage: 2.35 MG/2XW, IV
     Route: 042
     Dates: start: 20090417, end: 20090427
  3. ASAFLOW [Concomitant]
  4. GLUCOPHAGE [Concomitant]
  5. GLURENORM [Concomitant]
  6. LITICAN [Concomitant]
  7. MS DIRECT [Concomitant]
  8. ZANTAC [Concomitant]
  9. ZOFRAN [Concomitant]
  10. FOLIC ACID [Concomitant]

REACTIONS (5)
  - ANAEMIA [None]
  - HYPERVISCOSITY SYNDROME [None]
  - MALIGNANT NEOPLASM PROGRESSION [None]
  - MULTIPLE MYELOMA [None]
  - THROMBOCYTOPENIA [None]
